FAERS Safety Report 7691563-1 (Version None)
Quarter: 2011Q3

REPORT INFORMATION
  Report Type: 
  Country: None (occurrence: None)
  Receive Date: 20110817
  Receipt Date: 20110817
  Transmission Date: 20111222
  Serious: Yes (Hospitalization)
  Sender: FDA-Public Use
  Company Number: None

PATIENT
  Sex: Female
  Weight: 9.53 kg

DRUGS (2)
  1. THIOTEPA [Suspect]
     Dosage: 186 MG
  2. CARBOPLATIN [Suspect]
     Dosage: 316 MG

REACTIONS (8)
  - VOMITING [None]
  - HYPERTENSION [None]
  - CAECITIS [None]
  - TACHYCARDIA [None]
  - ABDOMINAL ADHESIONS [None]
  - CLOSTRIDIUM TEST POSITIVE [None]
  - DIARRHOEA [None]
  - OBSTRUCTION [None]
